FAERS Safety Report 8603421-6 (Version None)
Quarter: 2012Q3

REPORT INFORMATION
  Report Type: 
  Country: None (occurrence: None)
  Receive Date: 20120817
  Receipt Date: 20120813
  Transmission Date: 20120928
  Serious: No
  Sender: FDA-Public Use
  Company Number: US-PFIZER INC-2012197625

PATIENT
  Age: 29 Year
  Sex: Female
  Weight: 58.503 kg

DRUGS (1)
  1. PROVERA [Suspect]
     Indication: AMENORRHOEA
     Dosage: 10 MG, 2X/DAY
     Route: 048
     Dates: start: 20120809

REACTIONS (2)
  - EMOTIONAL DISORDER [None]
  - MOOD SWINGS [None]
